FAERS Safety Report 21484280 (Version 1)
Quarter: 2022Q4

REPORT INFORMATION
  Report Type: Spontaneous
  Country: US (occurrence: US)
  Receive Date: 20221020
  Receipt Date: 20221020
  Transmission Date: 20230112
  Serious: Yes (Hospitalization, Other)
  Sender: FDA-Public Use
  Company Number: US-APOTEX-2022AP014365

PATIENT
  Age: 36 Year
  Sex: Female

DRUGS (2)
  1. DASATINIB [Suspect]
     Active Substance: DASATINIB
     Indication: Chronic myeloid leukaemia
     Dosage: UNK (FULL DOSE)
     Route: 065
  2. DASATINIB [Suspect]
     Active Substance: DASATINIB
     Dosage: UNK (LOWER DOSE)
     Route: 065

REACTIONS (2)
  - Chylothorax [Recovered/Resolved]
  - Disease recurrence [Recovered/Resolved]
